FAERS Safety Report 21083505 (Version 1)
Quarter: 2022Q3

REPORT INFORMATION
  Report Type: Report from Study
  Country: HR (occurrence: HR)
  Receive Date: 20220714
  Receipt Date: 20220714
  Transmission Date: 20221026
  Serious: Yes (Other)
  Sender: FDA-Public Use
  Company Number: HR-TAKEDA-2022TUS047242

PATIENT
  Age: 2 Year
  Sex: Male
  Weight: 12.7 kg

DRUGS (7)
  1. TEDUGLUTIDE [Suspect]
     Active Substance: TEDUGLUTIDE
     Indication: Short-bowel syndrome
     Dosage: 0.5 MILLIGRAM
     Route: 058
     Dates: start: 20210413
  2. TEDUGLUTIDE [Suspect]
     Active Substance: TEDUGLUTIDE
     Indication: Short-bowel syndrome
     Dosage: 0.5 MILLIGRAM
     Route: 058
     Dates: start: 20210413
  3. TEDUGLUTIDE [Suspect]
     Active Substance: TEDUGLUTIDE
     Indication: Short-bowel syndrome
     Dosage: 0.5 MILLIGRAM
     Route: 058
     Dates: start: 20210413
  4. TEDUGLUTIDE [Suspect]
     Active Substance: TEDUGLUTIDE
     Indication: Short-bowel syndrome
     Dosage: 0.5 MILLIGRAM
     Route: 058
     Dates: start: 20210413
  5. NEXIUM [Concomitant]
     Active Substance: ESOMEPRAZOLE MAGNESIUM
     Indication: Short-bowel syndrome
     Dosage: 5 MILLIGRAM
     Route: 048
     Dates: start: 20191108
  6. CHOLESTYRAMINE [Concomitant]
     Active Substance: CHOLESTYRAMINE
     Indication: Short-bowel syndrome
     Dosage: 1000 MILLIGRAM
     Route: 048
     Dates: start: 20191108
  7. VITAMIN D3 [Concomitant]
     Active Substance: CHOLECALCIFEROL
     Indication: Short-bowel syndrome
     Dosage: 1200 INTERNATIONAL UNIT
     Route: 048
     Dates: start: 20191108

REACTIONS (1)
  - Varicella [Recovering/Resolving]

NARRATIVE: CASE EVENT DATE: 20220710
